FAERS Safety Report 8217618-0 (Version None)
Quarter: 2012Q1

REPORT INFORMATION
  Report Type: 
  Country: None (occurrence: None)
  Receive Date: 20120319
  Receipt Date: 20120319
  Transmission Date: 20120608
  Serious: Yes (Hospitalization)
  Sender: FDA-Public Use
  Company Number: None

PATIENT
  Age: 18 Year
  Sex: Female
  Weight: 56.699 kg

DRUGS (2)
  1. CLARAVIS [Concomitant]
     Dosage: ONE CAPSULE
     Route: 048
     Dates: start: 20090116, end: 20090516
  2. CLARAVIS [Suspect]
     Indication: ACNE
     Dosage: ONE CAPSULE
     Route: 048
     Dates: start: 20090216, end: 20090516

REACTIONS (8)
  - ABDOMINAL PAIN UPPER [None]
  - PRODUCT QUALITY ISSUE [None]
  - FATIGUE [None]
  - DEPRESSION [None]
  - FEELINGS OF WORTHLESSNESS [None]
  - ABDOMINAL DISTENSION [None]
  - AMENORRHOEA [None]
  - SLEEP DISORDER [None]
